FAERS Safety Report 12174537 (Version 1)
Quarter: 2016Q1

REPORT INFORMATION
  Report Type: Report from Study
  Country: AR (occurrence: AR)
  Receive Date: 20160311
  Receipt Date: 20160311
  Transmission Date: 20160526
  Serious: Yes (Hospitalization)
  Sender: FDA-Public Use
  Company Number: PHHY2016AR032209

PATIENT
  Age: 92 Year
  Sex: Female
  Weight: 92 kg

DRUGS (2)
  1. DIOVAN [Suspect]
     Active Substance: VALSARTAN
     Indication: HYPERTENSION
     Dosage: 2 DF (160), QD
     Route: 065
     Dates: start: 2014
  2. DIOVAN [Suspect]
     Active Substance: VALSARTAN
     Indication: CARDIAC DISORDER

REACTIONS (9)
  - Gait disturbance [Recovered/Resolved]
  - Heat stroke [Recovered/Resolved]
  - Lung disorder [Recovered/Resolved]
  - Choking [Recovered/Resolved]
  - Pneumonia [Recovered/Resolved]
  - Hyperhidrosis [Recovered/Resolved]
  - Agitation [Recovered/Resolved]
  - Diabetes mellitus [Recovered/Resolved]
  - Blood pressure increased [Recovered/Resolved]

NARRATIVE: CASE EVENT DATE: 20160203
